FAERS Safety Report 4268760-0 (Version None)
Quarter: 2004Q1

REPORT INFORMATION
  Report Type: 
  Country: None (occurrence: None)
  Receive Date: 20040112
  Receipt Date: 20030804
  Transmission Date: 20041129
  Serious: Yes (Hospitalization)
  Sender: FDA-Public Use
  Company Number: DE-BRISTOL-MYERS SQUIBB COMPANY-12348884

PATIENT
  Age: 63 Year
  Sex: Male

DRUGS (4)
  1. METFORMIN HCL [Suspect]
     Indication: DIABETES MELLITUS
     Dates: start: 20021008, end: 20030404
  2. GLYBURIDE [Suspect]
     Indication: DIABETES MELLITUS
     Dates: start: 20021008, end: 20030404
  3. TRANDOLAPRIL [Concomitant]
  4. EUTHYROX [Concomitant]

REACTIONS (12)
  - ABDOMINAL PAIN [None]
  - ABDOMINAL SYMPTOM [None]
  - ABNORMAL FAECES [None]
  - DECREASED APPETITE [None]
  - GENERAL PHYSICAL HEALTH DETERIORATION [None]
  - HEPATIC FIBROSIS [None]
  - HEPATIC STEATOSIS [None]
  - HEPATITIS GRANULOMATOUS [None]
  - NIGHT SWEATS [None]
  - PNEUMONIA [None]
  - PYREXIA [None]
  - URINARY TRACT INFECTION [None]
